FAERS Safety Report 7768393-5 (Version None)
Quarter: 2011Q3

REPORT INFORMATION
  Report Type: 
  Country: None (occurrence: None)
  Receive Date: 20110922
  Receipt Date: 20110228
  Transmission Date: 20111222
  Serious: No
  Sender: FDA-Public Use
  Company Number: US-ASTRAZENECA-2011SE09496

PATIENT
  Age: 46 Year
  Sex: Female
  Weight: 102.1 kg

DRUGS (6)
  1. RESTORIL [Concomitant]
     Indication: SLEEP DISORDER
  2. DEPAKOTE [Concomitant]
     Indication: BIPOLAR DISORDER
  3. ABILIFY [Concomitant]
     Indication: BIPOLAR DISORDER
  4. SEROQUEL XR [Suspect]
     Indication: DEPRESSION
     Route: 048
  5. CELEXA [Concomitant]
     Indication: BIPOLAR DISORDER
  6. SEROQUEL XR [Suspect]
     Indication: BIPOLAR DISORDER
     Route: 048

REACTIONS (5)
  - DIARRHOEA [None]
  - FEELING ABNORMAL [None]
  - DRUG DOSE OMISSION [None]
  - MIGRAINE [None]
  - WEIGHT INCREASED [None]
